FAERS Safety Report 13389352 (Version 4)
Quarter: 2017Q2

REPORT INFORMATION
  Report Type: Spontaneous
  Country: US (occurrence: US)
  Receive Date: 20170330
  Receipt Date: 20170524
  Transmission Date: 20170830
  Serious: Yes (Hospitalization, Other)
  Sender: FDA-Public Use
  Company Number: US-PFIZER INC-2017130642

PATIENT
  Age: 62 Year
  Sex: Female

DRUGS (44)
  1. DASATINIB [Suspect]
     Active Substance: DASATINIB
     Indication: DISEASE RECURRENCE
     Dosage: UNK (RECEIVED 12 OF 24 PLANNED CYCLES (1 IN 1 CYCLICAL))
  2. DASATINIB [Suspect]
     Active Substance: DASATINIB
     Indication: ACUTE LYMPHOCYTIC LEUKAEMIA
  3. DASATINIB [Suspect]
     Active Substance: DASATINIB
     Indication: PHILADELPHIA CHROMOSOME POSITIVE
  4. METHOTREXATE SODIUM. [Suspect]
     Active Substance: METHOTREXATE SODIUM
     Indication: ACUTE LYMPHOCYTIC LEUKAEMIA
     Dosage: UNK
  5. DOXORUBICIN HCL [Suspect]
     Active Substance: DOXORUBICIN HYDROCHLORIDE
     Indication: ACUTE LYMPHOCYTIC LEUKAEMIA
  6. CYCLOPHOSPHAMIDE. [Suspect]
     Active Substance: CYCLOPHOSPHAMIDE
     Indication: ACUTE LYMPHOCYTIC LEUKAEMIA
     Dosage: UNK (TOTAL 2 CYCLES, INDUCTION THERAPY (1 IN 1 CYCLICAL)
  7. CHLORHEXIDINE [Concomitant]
     Active Substance: CHLORHEXIDINE
     Dosage: UNK, DAILY
     Route: 061
  8. FLUTICASONE FUROATE W/VILANTEROL [Concomitant]
     Active Substance: FLUTICASONE FUROATE\VILANTEROL TRIFENATATE
     Dosage: 1 DF, DAILY (1 PUFF)
     Route: 055
  9. PIPERACILLIN AND TAZOBACTAM [Concomitant]
     Active Substance: PIPERACILLIN SODIUM\TAZOBACTAM SODIUM
     Dosage: 4.5 G, 4X/DAY (Q 6 HOURS SCH)
  10. CYTARABINE. [Suspect]
     Active Substance: CYTARABINE
     Indication: ACUTE LYMPHOCYTIC LEUKAEMIA
     Dosage: UNK
  11. DOXORUBICIN HCL [Suspect]
     Active Substance: DOXORUBICIN HYDROCHLORIDE
     Indication: PHILADELPHIA CHROMOSOME POSITIVE
  12. DEXAMETHASONE. [Suspect]
     Active Substance: DEXAMETHASONE
     Indication: ACUTE LYMPHOCYTIC LEUKAEMIA
  13. DEXAMETHASONE. [Suspect]
     Active Substance: DEXAMETHASONE
     Indication: PHILADELPHIA CHROMOSOME POSITIVE
  14. CYCLOPHOSPHAMIDE. [Suspect]
     Active Substance: CYCLOPHOSPHAMIDE
     Indication: DISEASE RECURRENCE
  15. DASATINIB [Suspect]
     Active Substance: DASATINIB
     Indication: ACUTE LYMPHOCYTIC LEUKAEMIA
     Dosage: UNK (TOTAL 2 CYCLES, INDUCTION THERAPY (1 IN 1 CYCLICAL)
  16. GUAIFENESIN. [Concomitant]
     Active Substance: GUAIFENESIN
     Dosage: 600 MG, 2X/DAY (Q 12HOURS)
     Route: 048
  17. ACYCLOVIR. [Concomitant]
     Active Substance: ACYCLOVIR
     Dosage: 400 MG, 2X/DAY (Q 12 HOURS)
     Route: 048
  18. METFORMIN [Concomitant]
     Active Substance: METFORMIN HYDROCHLORIDE
     Dosage: 1000 MG, 2X/DAY (BID WC)
     Route: 048
  19. SULFAMETHOXAZOLE W/TRIMETHOPRIM [Concomitant]
     Active Substance: SULFAMETHOXAZOLE\TRIMETHOPRIM
     Dosage: 1 DF, (1 TAB ORAL THREE TIMES WEEKLY (MON- WED-FRI))
     Route: 048
  20. VINCRISTINE SULFATE. [Suspect]
     Active Substance: VINCRISTINE SULFATE
     Indication: ACUTE LYMPHOCYTIC LEUKAEMIA
  21. DOXORUBICIN HCL [Suspect]
     Active Substance: DOXORUBICIN HYDROCHLORIDE
     Indication: ACUTE LYMPHOCYTIC LEUKAEMIA
     Dosage: UNK (TOTAL 2 CYCLES, INDUCTION THERAPY (1 IN 1 CYCLICAL)
  22. DEXAMETHASONE. [Suspect]
     Active Substance: DEXAMETHASONE
     Indication: DISEASE RECURRENCE
     Dosage: UNK (TOTAL 2 CYCLES, INDUCTION THERAPY (1 IN 1 CYCLICAL)
  23. LOSARTAN. [Concomitant]
     Active Substance: LOSARTAN
     Dosage: 50 MG, DAILY
     Route: 048
  24. METHYLPREDNISOLONE. [Suspect]
     Active Substance: METHYLPREDNISOLONE
     Indication: DISEASE RECURRENCE
  25. FLUCONAZOLE. [Concomitant]
     Active Substance: FLUCONAZOLE
     Dosage: 200 MG, DAILY
     Route: 048
  26. TIOTROPIUM [Concomitant]
     Active Substance: TIOTROPIUM
     Dosage: 18 UG, DAILY
     Route: 055
  27. DOXORUBICIN HCL [Suspect]
     Active Substance: DOXORUBICIN HYDROCHLORIDE
     Indication: DISEASE RECURRENCE
  28. DEXAMETHASONE. [Suspect]
     Active Substance: DEXAMETHASONE
     Indication: ACUTE LYMPHOCYTIC LEUKAEMIA
     Dosage: 40 MG, UNK
     Route: 042
  29. DEXTROMETHORPHAN POLISTIREX [Concomitant]
     Active Substance: DEXTROMETHORPHAN HYDROBROMIDE
     Dosage: 60 MG, 2X/DAY (Q12 HOURS)
     Route: 048
  30. FUROSEMIDE. [Concomitant]
     Active Substance: FUROSEMIDE
     Dosage: 20 MG, DAILY
     Route: 048
  31. AZITHROMYCIN ANHYDROUS. [Concomitant]
     Active Substance: AZITHROMYCIN ANHYDROUS
     Dosage: 500 MG, DAILY (Q 24 HOURS INT)
     Route: 042
  32. HUMALOG [Concomitant]
     Active Substance: INSULIN LISPRO
     Dosage: 2-5 UNITS, 3X/DAY
     Route: 058
  33. MULTIVITAMINS [Concomitant]
     Active Substance: VITAMINS
     Dosage: 1 DF, DAILY
  34. VINCRISTINE SULFATE. [Suspect]
     Active Substance: VINCRISTINE SULFATE
     Indication: ACUTE LYMPHOCYTIC LEUKAEMIA
     Dosage: UNK (TOTAL 2 CYCLES, INDUCTION THERAPY (1 IN 1 CYCLICAL)
  35. METHYLPREDNISOLONE. [Suspect]
     Active Substance: METHYLPREDNISOLONE
     Indication: ACUTE LYMPHOCYTIC LEUKAEMIA
     Dosage: UNK
  36. MAGNESIUM OXIDE. [Concomitant]
     Active Substance: MAGNESIUM OXIDE
     Dosage: 400 MG, 2X/DAY
     Route: 048
  37. GABAPENTIN. [Concomitant]
     Active Substance: GABAPENTIN
     Dosage: 100 MG, 3X/DAY
     Route: 048
  38. VINCRISTINE SULFATE. [Suspect]
     Active Substance: VINCRISTINE SULFATE
     Indication: DISEASE RECURRENCE
     Dosage: UNK (RECEIVED 12 OF 24 PLANNED CYCLES )
  39. VINCRISTINE SULFATE. [Suspect]
     Active Substance: VINCRISTINE SULFATE
     Indication: PHILADELPHIA CHROMOSOME POSITIVE
  40. CYTARABINE. [Suspect]
     Active Substance: CYTARABINE
     Indication: DISEASE RECURRENCE
  41. METHOTREXATE SODIUM. [Suspect]
     Active Substance: METHOTREXATE SODIUM
     Indication: DISEASE RECURRENCE
  42. CYCLOPHOSPHAMIDE. [Suspect]
     Active Substance: CYCLOPHOSPHAMIDE
     Indication: ACUTE LYMPHOCYTIC LEUKAEMIA
  43. CYCLOPHOSPHAMIDE. [Suspect]
     Active Substance: CYCLOPHOSPHAMIDE
     Indication: PHILADELPHIA CHROMOSOME POSITIVE
  44. VANCOMYCIN [Concomitant]
     Active Substance: VANCOMYCIN
     Dosage: 1 G, 2X/DAY (Q 12 HOURS INT)
     Route: 042

REACTIONS (10)
  - Productive cough [Unknown]
  - Asthenia [Unknown]
  - Neoplasm recurrence [Unknown]
  - Pleural effusion [Unknown]
  - Respiratory acidosis [Unknown]
  - Atrial fibrillation [Unknown]
  - Lung infiltration [Unknown]
  - Hypoxia [Unknown]
  - Pneumonia [Unknown]
  - Toxicity to various agents [Unknown]
